FAERS Safety Report 19974047 (Version 1)
Quarter: 2021Q4

REPORT INFORMATION
  Report Type: Spontaneous
  Country: US (occurrence: US)
  Receive Date: 20211020
  Receipt Date: 20211020
  Transmission Date: 20220303
  Serious: Yes (Death)
  Sender: FDA-Public Use
  Company Number: None

PATIENT
  Sex: Male
  Weight: 83.25 kg

DRUGS (11)
  1. CALQUENCE [Suspect]
     Active Substance: ACALABRUTINIB
     Indication: Chronic lymphocytic leukaemia
     Dosage: ?          QUANTITY:1 TABLET(S);
     Route: 048
  2. ELIQUIS [Concomitant]
     Active Substance: APIXABAN
  3. FAMCICLOVIR [Concomitant]
     Active Substance: FAMCICLOVIR
  4. PEPCID [Concomitant]
     Active Substance: FAMOTIDINE
  5. GABAPENTIN [Concomitant]
     Active Substance: GABAPENTIN
  6. LEVOTHYROXINE [Concomitant]
     Active Substance: LEVOTHYROXINE
  7. METOPROLOL [Concomitant]
     Active Substance: METOPROLOL
  8. SERTRALINE SUCCINATE [Concomitant]
  9. VIT-B 12 [Concomitant]
  10. FOLIC ACID [Concomitant]
     Active Substance: FOLIC ACID
  11. MAGNESIUM [Concomitant]
     Active Substance: MAGNESIUM

REACTIONS (1)
  - Progressive multifocal leukoencephalopathy [None]
